FAERS Safety Report 5248271-6 (Version None)
Quarter: 2007Q1

REPORT INFORMATION
  Report Type: 
  Country: None (occurrence: None)
  Receive Date: 20070227
  Receipt Date: 20061030
  Transmission Date: 20070707
  Serious: No
  Sender: FDA-Public Use
  Company Number: US-BRISTOL-MYERS SQUIBB COMPANY-13559547

PATIENT
  Age: 68 Year
  Sex: Female
  Weight: 85 kg

DRUGS (7)
  1. GLUCOPHAGE [Suspect]
     Indication: DIABETES MELLITUS
  2. DIOVAN [Concomitant]
  3. DEMADEX [Concomitant]
  4. LOPRESSOR [Concomitant]
  5. SINGULAIR [Concomitant]
  6. LEVOXYL [Concomitant]
  7. ZOLOFT [Concomitant]

REACTIONS (4)
  - HEADACHE [None]
  - HYPOTENSION [None]
  - LOSS OF CONSCIOUSNESS [None]
  - WEIGHT INCREASED [None]
